FAERS Safety Report 21184268 (Version 1)
Quarter: 2022Q3

REPORT INFORMATION
  Report Type: Spontaneous
  Country: TW (occurrence: None)
  Receive Date: 20220808
  Receipt Date: 20220808
  Transmission Date: 20221027
  Serious: Yes (Other)
  Sender: FDA-Public Use
  Company Number: TW-MICRO LABS LIMITED-ML2022-03990

PATIENT
  Age: 22 Year
  Sex: Male

DRUGS (3)
  1. LEVETIRACETAM [Suspect]
     Active Substance: LEVETIRACETAM
     Indication: Status epilepticus
     Dosage: LOADING DOSE OF 1G, FOLLOWED BY 1 G/DAY OPTIMIZED TO 3 G/DAY AS A MAINTENANCE DOSE
     Route: 042
  2. ACYCLOVIR [Suspect]
     Active Substance: ACYCLOVIR
     Indication: Encephalitis autoimmune
     Dosage: 5?10 MG/KG FOR 5 DAYS
     Route: 042
  3. VALPROATE SODIUM [Suspect]
     Active Substance: VALPROATE SODIUM
     Indication: Encephalitis autoimmune
     Dosage: AT A LOADING DOSE OF 25 MG/KG, FOLLOWED BY MAINTENANCE DOSE OF 20 MG/KG/DAY
     Route: 042

REACTIONS (2)
  - Hypercapnia [Recovered/Resolved]
  - Drug ineffective [Unknown]
